FAERS Safety Report 4632484-8 (Version None)
Quarter: 2005Q2

REPORT INFORMATION
  Report Type: 
  Country: None (occurrence: None)
  Receive Date: 20050411
  Receipt Date: 20050330
  Transmission Date: 20051028
  Serious: Yes (Hospitalization)
  Sender: FDA-Public Use
  Company Number: US-BRISTOL-MYERS SQUIBB COMPANY-12915658

PATIENT
  Age: 65 Year
  Sex: Male
  Weight: 89 kg

DRUGS (8)
  1. WARFARIN SODIUM [Suspect]
     Indication: AORTIC VALVE REPLACEMENT
     Route: 048
     Dates: start: 20050218, end: 20050304
  2. BIVALIRUDIN [Concomitant]
     Route: 040
     Dates: start: 20050216, end: 20050216
  3. BUMEX [Concomitant]
  4. FAMOTIDINE [Concomitant]
  5. ISOSORBIDE [Concomitant]
  6. POTASSIUM CHLORIDE [Concomitant]
  7. METOPROLOL TARTRATE [Concomitant]
  8. PANTOPRAZOLE SODIUM [Concomitant]

REACTIONS (2)
  - CARDIAC FAILURE CONGESTIVE [None]
  - GASTROINTESTINAL HAEMORRHAGE [None]
